FAERS Safety Report 9133329 (Version 1)
Quarter: 2013Q1

REPORT INFORMATION
  Report Type: Spontaneous
  Country: PK (occurrence: PK)
  Receive Date: 20130301
  Receipt Date: 20130301
  Transmission Date: 20140127
  Serious: Yes (Death, Hospitalization)
  Sender: FDA-Public Use
  Company Number: PK-PFIZER INC-2013049689

PATIENT
  Age: 50 Year
  Sex: Female

DRUGS (4)
  1. LINCOCIN [Suspect]
     Indication: TOOTHACHE
     Dosage: 500 MG, UNK
     Route: 048
     Dates: end: 20130204
  2. LINCOCIN [Suspect]
     Indication: INFECTION
  3. FELDENE [Concomitant]
     Indication: TOOTHACHE
     Dosage: 20 MG, UNK
     Route: 048
     Dates: end: 20130204
  4. FELDENE [Concomitant]
     Indication: INFECTION

REACTIONS (3)
  - Cardiopulmonary failure [Fatal]
  - Diarrhoea [Not Recovered/Not Resolved]
  - Chest pain [Not Recovered/Not Resolved]
